FAERS Safety Report 16724356 (Version 3)
Quarter: 2019Q3

REPORT INFORMATION
  Report Type: Spontaneous
  Country: US (occurrence: US)
  Receive Date: 20190821
  Receipt Date: 20190926
  Transmission Date: 20191005
  Serious: Yes (Other)
  Sender: FDA-Public Use
  Company Number: US-PFIZER INC-2019356522

PATIENT
  Age: 23 Year
  Sex: Male

DRUGS (7)
  1. LEVETIRACETAM. [Suspect]
     Active Substance: LEVETIRACETAM
     Dosage: 800 TO 2,000MG
     Route: 048
  2. GENOTROPIN MQ [Suspect]
     Active Substance: SOMATROPIN
     Indication: GROWTH HORMONE DEFICIENCY
     Dosage: 0.6 MG, DAILY
  3. LEVETIRACETAM. [Suspect]
     Active Substance: LEVETIRACETAM
     Dosage: 2.5 G, 2X/DAY (2.5 GRAMS BY MOUTH IN THE MORNING AND 2.5 GRAMS BY MOUTH AT NIGHT)
     Route: 048
  4. HYDROCORTISONE ACETATE. [Concomitant]
     Active Substance: HYDROCORTISONE ACETATE
     Dosage: 120 A MONTH
     Route: 048
  5. LAMOTRIGINE. [Suspect]
     Active Substance: LAMOTRIGINE
     Dosage: 100 MG, 2X/DAY
     Route: 048
  6. SYNTHROID [Concomitant]
     Active Substance: LEVOTHYROXINE SODIUM
     Dosage: 175 UG, 1X/DAY
     Route: 048
  7. TESTOSTERONE [TESTOSTERONE CIPIONATE] [Concomitant]
     Dosage: UNK

REACTIONS (9)
  - Tooth fracture [Unknown]
  - Generalised tonic-clonic seizure [Unknown]
  - Fluid retention [Unknown]
  - Petechiae [Unknown]
  - Osteoporosis [Unknown]
  - Stress [Unknown]
  - Epilepsy [Unknown]
  - Partial seizures [Recovering/Resolving]
  - Growth accelerated [Unknown]

NARRATIVE: CASE EVENT DATE: 2013
